FAERS Safety Report 19874905 (Version 1)
Quarter: 2021Q3

REPORT INFORMATION
  Report Type: Spontaneous
  Country: JP (occurrence: JP)
  Receive Date: 20210923
  Receipt Date: 20210923
  Transmission Date: 20211014
  Serious: Yes (Hospitalization, Other)
  Sender: FDA-Public Use
  Company Number: JP-ACCORD-239034

PATIENT
  Age: 3 Year
  Sex: Female

DRUGS (1)
  1. TACROLIMUS. [Suspect]
     Active Substance: TACROLIMUS
     Indication: IMMUNOSUPPRESSANT DRUG THERAPY
     Route: 048

REACTIONS (4)
  - Quality of life decreased [Unknown]
  - Dysuria [Recovered/Resolved]
  - Papilloma viral infection [Recovered/Resolved]
  - Anogenital warts [Recovered/Resolved]
